FAERS Safety Report 20670260 (Version 2)
Quarter: 2022Q2

REPORT INFORMATION
  Report Type: Spontaneous
  Country: US (occurrence: US)
  Receive Date: 20220404
  Receipt Date: 20220419
  Transmission Date: 20220721
  Serious: No
  Sender: FDA-Public Use
  Company Number: US-JNJFOC-20220353545

PATIENT
  Sex: Female

DRUGS (1)
  1. WOMENS ROGAINE UNSCENTED [Suspect]
     Active Substance: MINOXIDIL
     Indication: Alopecia
     Dosage: CAPFUL ONCE A DAY
     Route: 061

REACTIONS (4)
  - Hair colour changes [Unknown]
  - Pruritus [Unknown]
  - Skin burning sensation [Unknown]
  - Overdose [Unknown]

NARRATIVE: CASE EVENT DATE: 20220324
